FAERS Safety Report 5186440-4 (Version None)
Quarter: 2006Q4

REPORT INFORMATION
  Report Type: 
  Country: None (occurrence: None)
  Receive Date: 20061220
  Receipt Date: 20060822
  Transmission Date: 20070319
  Serious: Yes (Hospitalization)
  Sender: FDA-Public Use
  Company Number: DE-ELI_LILLY_AND_COMPANY-DE200609001663

PATIENT
  Age: 73 Year
  Sex: Female

DRUGS (11)
  1. SEROQUEL [Concomitant]
     Dosage: 25 MG, UNK
     Route: 048
  2. LEVOTHYROXINE SODIUM [Concomitant]
     Dosage: 50 UG, EACH MORNING
     Route: 048
  3. ZOPICLONE [Concomitant]
     Route: 048
  4. CALCIMED D3 [Concomitant]
     Dosage: UNK, 2/D
     Route: 048
  5. OMEPRAZOLE [Concomitant]
     Route: 048
  6. SIMVASTATIN [Concomitant]
  7. ASPIRIN [Concomitant]
     Dosage: 100 MG, DAILY (1/D)
     Route: 048
  8. CONCOR [Concomitant]
     Dosage: 2.5 MG, 2/D
     Route: 048
  9. NORVASC [Concomitant]
     Dosage: 5 MG, EACH MORNING
     Route: 048
  10. CYMBALTA [Suspect]
     Indication: DEPRESSION
     Dosage: UNK, UNK
     Route: 048
  11. CYMBALTA [Suspect]
     Dosage: 60 MG, DAILY (1/D)
     Route: 048
     Dates: start: 20060501

REACTIONS (7)
  - BLOOD CALCIUM DECREASED [None]
  - BLOOD FOLLICLE STIMULATING HORMONE DECREASED [None]
  - BLOOD LUTEINISING HORMONE DECREASED [None]
  - FUNGAL INFECTION [None]
  - HYPONATRAEMIA [None]
  - INAPPROPRIATE ANTIDIURETIC HORMONE SECRETION [None]
  - UTERINE ATROPHY [None]
